FAERS Safety Report 22029590 (Version 1)
Quarter: 2023Q1

REPORT INFORMATION
  Report Type: Spontaneous
  Country: US (occurrence: US)
  Receive Date: 20230223
  Receipt Date: 20230223
  Transmission Date: 20230417
  Serious: Yes (Other)
  Sender: FDA-Public Use
  Company Number: US-AMERICAN REGENT INC-2023000402

PATIENT
  Age: 6 Month
  Sex: Male

DRUGS (17)
  1. GANCICLOVIR [Suspect]
     Active Substance: GANCICLOVIR
     Indication: Cytomegalovirus viraemia
     Dosage: 5 MG/KG, Q12 HOURS (INDUCTION DOSING)
     Route: 042
  2. GANCICLOVIR [Suspect]
     Active Substance: GANCICLOVIR
     Dosage: 10 MG/KG, Q12 HOURS
     Route: 042
  3. GANCICLOVIR [Suspect]
     Active Substance: GANCICLOVIR
     Dosage: 7.5 MG/KG, Q12 HOURS
     Route: 042
  4. GANCICLOVIR [Suspect]
     Active Substance: GANCICLOVIR
     Dosage: 5 MG/KG, Q 12 HOURS
     Route: 042
  5. BUSULFAN [Suspect]
     Active Substance: BUSULFAN
     Indication: Bone marrow conditioning regimen
     Dosage: UNK
     Route: 065
  6. CYCLOPHOSPHAMIDE [Suspect]
     Active Substance: CYCLOPHOSPHAMIDE
     Indication: Bone marrow conditioning regimen
     Dosage: UNK
     Route: 065
  7. ALEMTUZUMAB [Suspect]
     Active Substance: ALEMTUZUMAB
     Indication: Prophylaxis against graft versus host disease
     Dosage: 3 MILLIGRAM, SINGLE
     Route: 065
  8. FOSCARNET [Suspect]
     Active Substance: FOSCARNET
     Indication: Cytomegalovirus viraemia
     Dosage: 90 MG/KG, Q12 HOURS ON DAY +1
     Route: 042
  9. FOSCARNET [Suspect]
     Active Substance: FOSCARNET
     Dosage: 60 MG/KG, Q8 HOURS
     Route: 042
  10. AMOXICILLIN [Concomitant]
     Active Substance: AMOXICILLIN
     Indication: Antibiotic prophylaxis
     Dosage: UNK, DAILY
     Route: 065
  11. SULFAMETHOXAZOLE\TRIMETHOPRIM [Concomitant]
     Active Substance: SULFAMETHOXAZOLE\TRIMETHOPRIM
     Indication: Antibiotic prophylaxis
     Dosage: UNK, DAILY
     Route: 065
  12. HUMAN IMMUNOGLOBULIN G [Concomitant]
     Active Substance: HUMAN IMMUNOGLOBULIN G
     Indication: Antibiotic prophylaxis
     Dosage: UNK, MONTHLY
     Route: 042
  13. HUMAN IMMUNOGLOBULIN G [Concomitant]
     Active Substance: HUMAN IMMUNOGLOBULIN G
     Indication: Antiviral prophylaxis
  14. HUMAN IMMUNOGLOBULIN G [Concomitant]
     Active Substance: HUMAN IMMUNOGLOBULIN G
     Indication: Antifungal prophylaxis
  15. TACROLIMUS [Concomitant]
     Active Substance: TACROLIMUS
     Indication: Prophylaxis against graft versus host disease
     Dosage: 0.6 MILLIGRAM, BID
     Route: 065
  16. METHOTREXATE [Concomitant]
     Active Substance: METHOTREXATE
     Indication: Prophylaxis against graft versus host disease
     Dosage: 1.75 MILLIGRAM, ON DAYS +1, +3, +6 AND +11
     Route: 065
  17. IMMUNOGLOBULIN ANTI-CYTOMEGALOVIRUS [Concomitant]
     Indication: Cytomegalovirus viraemia
     Dosage: UNK, INITIATED ON DAY +11
     Route: 065

REACTIONS (6)
  - Drug resistance [Unknown]
  - Cytomegalovirus infection [Unknown]
  - Myelosuppression [Unknown]
  - Lymphopenia [Unknown]
  - Pneumonia viral [Unknown]
  - Product use issue [Unknown]
